FAERS Safety Report 11301402 (Version 1)
Quarter: 2015Q3

REPORT INFORMATION
  Report Type: Spontaneous
  Country: US (occurrence: US)
  Receive Date: 20150722
  Receipt Date: 20150722
  Transmission Date: 20151125
  Serious: No
  Sender: FDA-Public Use
  Company Number: US-ELI_LILLY_AND_COMPANY-US201002005692

PATIENT
  Age: 11 Year
  Sex: Female
  Weight: 36.2 kg

DRUGS (1)
  1. HUMATROPE [Suspect]
     Active Substance: SOMATROPIN
     Dosage: 1.6 MG, DAILY (1/D)
     Route: 058
     Dates: start: 201002

REACTIONS (7)
  - Oropharyngeal pain [Recovered/Resolved]
  - Nausea [Recovered/Resolved]
  - Vomiting [Recovered/Resolved]
  - Pallor [Recovered/Resolved]
  - Pharyngitis streptococcal [Recovered/Resolved]
  - Pyrexia [Recovered/Resolved]
  - Ear pain [Recovered/Resolved]

NARRATIVE: CASE EVENT DATE: 20100218
